FAERS Safety Report 6684073-1 (Version None)
Quarter: 2010Q2

REPORT INFORMATION
  Report Type: 
  Country: None (occurrence: None)
  Receive Date: 20100416
  Receipt Date: 20100401
  Transmission Date: 20101027
  Serious: Yes (Other)
  Sender: FDA-Public Use
  Company Number: PHEH2008US08948

PATIENT
  Sex: Female

DRUGS (51)
  1. ZOMETA [Suspect]
     Indication: MULTIPLE MYELOMA
     Dosage: 4 MG, QMO
     Route: 042
     Dates: start: 20021101, end: 20041026
  2. AREDIA [Suspect]
     Indication: MULTIPLE MYELOMA
     Dosage: UNK
     Dates: start: 20020824, end: 20021101
  3. CYCLOBENZAPRINE [Concomitant]
     Dosage: 10 MG/ 1-2 TABLETS 4X DAILY
  4. DOCUSATE SODIUM W/SENNA [Concomitant]
  5. LORAZEPAM [Concomitant]
  6. VIOXX [Concomitant]
  7. WELLBUTRIN SR [Concomitant]
  8. FLURBIPROFEN [Concomitant]
     Dosage: 100 MG TABLETS
  9. TRAMADOL HCL [Concomitant]
     Dosage: 50 MG TABLETS
  10. CHLORHEXIDINE DENTAL ^ACO^ [Concomitant]
     Dosage: UNK
  11. CLINDAMYCIN [Concomitant]
     Dosage: 150 MG TABLETS
  12. CEPHALEXIN [Concomitant]
     Dosage: 500 MG CAPSULES
  13. METHOCARBAMOL [Concomitant]
     Dosage: 750 MG TABLETS
  14. NORTRIPTYLINE HCL [Concomitant]
     Dosage: 250 MG TABLETS
  15. CHEMOTHERAPEUTICS NOS [Concomitant]
     Dosage: UNK
  16. MORPHINE SULFATE [Concomitant]
     Indication: PAIN
     Dosage: 30 MG / 1-2 TABLETS 4 X DAILY
  17. THALOMID [Concomitant]
     Dosage: 50 MG
  18. PREVACID [Concomitant]
     Dosage: UNK
  19. ZITHROMAX [Concomitant]
     Dosage: UNK
  20. METOCLOPRAMIDE HYDROCHLORIDE [Concomitant]
     Dosage: UNK
  21. PROCHLORPERAZINE [Concomitant]
     Dosage: UNK
  22. QUININE SULFATE [Concomitant]
     Dosage: UNK
  23. ZOLOFT [Concomitant]
     Dosage: UNK
  24. ALLOPURINOL [Concomitant]
     Dosage: UNK
  25. VALTREX [Concomitant]
     Dosage: 500 MG
  26. PROTONIX [Concomitant]
     Dosage: UNK
  27. ROXICODONE [Concomitant]
     Dosage: UNK
  28. ALUMINIUM HYDROCHLORIDE [Concomitant]
     Dosage: UNK
  29. NICODERM [Concomitant]
     Dosage: UNK
  30. CERTAGEN [Concomitant]
     Dosage: UNK
  31. DEXAMETHASONE [Concomitant]
     Dosage: UNK
  32. DAPSONE [Concomitant]
     Dosage: UNK
  33. NEPHROCAPS [Concomitant]
     Dosage: UNK
  34. PHOSLO [Concomitant]
     Dosage: UNK
  35. MIRALAX [Concomitant]
     Dosage: UNK
  36. METHADONE HCL [Concomitant]
     Dosage: UNK
  37. LEXAPRO [Concomitant]
     Dosage: UNK
  38. DECADRON [Concomitant]
     Dosage: 40 MG / QD
  39. PERI-COLACE [Concomitant]
     Dosage: UNK
  40. VELCADE [Concomitant]
  41. CALCIUM [Concomitant]
  42. DOCUSATE [Concomitant]
  43. PRILOSEC [Concomitant]
  44. THALIDOMIDE [Concomitant]
  45. NEUPOGEN [Concomitant]
  46. PROCRIT                            /00909301/ [Concomitant]
  47. VINCRISTINE [Concomitant]
     Dosage: UNK
     Dates: start: 20030603
  48. ADRIAMYCIN PFS [Concomitant]
     Dosage: UNK
     Dates: start: 20030603
  49. SPIRONOLACTONE ^GALLIER^ [Concomitant]
     Dosage: UNK
     Dates: start: 20070327
  50. GINSENG [Concomitant]
     Dosage: UNK
  51. ARANESP [Concomitant]
     Dosage: UNK

REACTIONS (46)
  - ABSCESS DRAINAGE [None]
  - ABSCESS JAW [None]
  - ALPHA HAEMOLYTIC STREPTOCOCCAL INFECTION [None]
  - ANAEMIA [None]
  - ANHEDONIA [None]
  - ANXIETY [None]
  - APHERESIS [None]
  - ARTHRALGIA [None]
  - DENTURE WEARER [None]
  - DEPRESSION [None]
  - DISABILITY [None]
  - EAR PAIN [None]
  - EDENTULOUS [None]
  - FIBROMYALGIA [None]
  - FISTULA DISCHARGE [None]
  - GINGIVAL OPERATION [None]
  - HAEMODIALYSIS [None]
  - HYPERCALCAEMIA [None]
  - HYPOAESTHESIA [None]
  - HYPOKALAEMIA [None]
  - IMPAIRED HEALING [None]
  - INJURY [None]
  - INTERVERTEBRAL DISC DEGENERATION [None]
  - INTERVERTEBRAL DISC PROTRUSION [None]
  - JAW OPERATION [None]
  - MUSCULOSKELETAL PAIN [None]
  - MYELOMA RECURRENCE [None]
  - MYOFASCIAL PAIN SYNDROME [None]
  - NERVE BLOCK [None]
  - OEDEMA PERIPHERAL [None]
  - OPEN WOUND [None]
  - ORAL SURGERY [None]
  - OSTEOMYELITIS [None]
  - OSTEONECROSIS [None]
  - PAIN [None]
  - PAIN IN JAW [None]
  - PANCYTOPENIA [None]
  - PARAESTHESIA [None]
  - PAROTID GLAND ENLARGEMENT [None]
  - RENAL FAILURE ACUTE [None]
  - SIALOADENITIS [None]
  - SPINAL OSTEOARTHRITIS [None]
  - SUBMANDIBULAR MASS [None]
  - TEMPOROMANDIBULAR JOINT SYNDROME [None]
  - TENDONITIS [None]
  - TOOTH EXTRACTION [None]
